FAERS Safety Report 8104191-0 (Version None)
Quarter: 2012Q1

REPORT INFORMATION
  Report Type: 
  Country: None (occurrence: None)
  Receive Date: 20120130
  Receipt Date: 20120120
  Transmission Date: 20120608
  Serious: Yes (Hospitalization)
  Sender: FDA-Public Use
  Company Number: US-ACTELION-A-US2011-58559

PATIENT

DRUGS (2)
  1. TRACLEER [Suspect]
     Indication: PULMONARY ARTERIAL HYPERTENSION
     Dosage: UNK
     Route: 048
     Dates: start: 20100201
  2. REVATIO [Concomitant]

REACTIONS (6)
  - DYSPNOEA [None]
  - CONSTIPATION [None]
  - PULMONARY ARTERIAL PRESSURE INCREASED [None]
  - PULMONARY OEDEMA [None]
  - FLUID RETENTION [None]
  - PLEURAL EFFUSION [None]
